FAERS Safety Report 8157578-4 (Version None)
Quarter: 2012Q1

REPORT INFORMATION
  Report Type: 
  Country: None (occurrence: None)
  Receive Date: 20120222
  Receipt Date: 20120116
  Transmission Date: 20120608
  Serious: No
  Sender: FDA-Public Use
  Company Number: US-ASTRAZENECA-2012SE03259

PATIENT
  Age: 60 Year
  Sex: Female

DRUGS (23)
  1. PROMETHAZINE HCL [Concomitant]
     Dosage: ONE SUPPOSITORY Q6H (EVERY SIX HOURS) PRN (AS NEEDED) MAX TWO IN 24 HOURS
     Route: 065
  2. AMOXICILLIN [Concomitant]
     Route: 048
  3. CALCIUM [Concomitant]
     Route: 048
  4. CITALOPRAM HYDROBROMIDE [Concomitant]
     Route: 048
  5. AMARYL [Concomitant]
     Route: 048
  6. SYMBICORT [Suspect]
     Dosage: 80/4.5 MCG TWO PUFF TWO TIMES EVERY DAY MORNING AND EVENING
     Route: 055
  7. ZOMIG [Suspect]
     Route: 048
  8. SPIRIVA [Concomitant]
     Route: 055
  9. VICODIN ES [Concomitant]
     Indication: PAIN
     Dosage: 7.5/750 MG, 0.5 TABLET EVERY FOUR TO SIX HOURS AS NEEDED (NOT TO EXCEED FIVE TABLET IN 24 HOURS)
     Route: 048
  10. CLONIDINE HCL [Concomitant]
     Route: 048
  11. ATENOLOL [Suspect]
     Route: 048
  12. ALBUTEROL SULFATE [Concomitant]
     Dosage: THREE TIMES EVERY DAY PRN (AS NEEDED)
     Route: 055
  13. ASPIRIN [Concomitant]
     Dosage: ONE TABLET EVERY DAY AS NEEDED
     Route: 048
  14. DOXEPIN HCL [Concomitant]
     Route: 048
  15. LISINOPRIL [Suspect]
     Route: 048
  16. BUSPAR [Concomitant]
     Indication: ANXIETY
     Route: 048
  17. CLARITIN [Concomitant]
     Route: 048
  18. LIPITOR [Concomitant]
     Route: 048
  19. NASONEX [Concomitant]
     Dosage: TWO SPRAY EVERYDAY
     Route: 045
  20. MELATONIN [Concomitant]
     Route: 065
  21. NORVASC [Concomitant]
     Route: 048
  22. FAMOTIDINE [Concomitant]
     Route: 048
  23. NEURONTIN [Concomitant]
     Route: 048

REACTIONS (8)
  - UPPER RESPIRATORY TRACT INFECTION [None]
  - RENAL FAILURE CHRONIC [None]
  - DRUG HYPERSENSITIVITY [None]
  - HYPERLIPIDAEMIA [None]
  - OSTEOARTHRITIS [None]
  - CHRONIC OBSTRUCTIVE PULMONARY DISEASE [None]
  - HYPERTENSION [None]
  - TYPE 2 DIABETES MELLITUS [None]
